FAERS Safety Report 21501762 (Version 1)
Quarter: 2022Q4

REPORT INFORMATION
  Report Type: Spontaneous
  Country: US (occurrence: US)
  Receive Date: 20221025
  Receipt Date: 20221025
  Transmission Date: 20230113
  Serious: Yes (Life-Threatening, Hospitalization, Other)
  Sender: FDA-Public Use
  Company Number: US-MLMSERVICE-20221010-3845856-1

PATIENT
  Age: 51 Year
  Sex: Male

DRUGS (5)
  1. PREDNISONE [Suspect]
     Active Substance: PREDNISONE
     Indication: Interstitial lung disease
     Dosage: 15 MILLIGRAM, ONCE A DAY
     Route: 065
  2. AZATHIOPRINE [Suspect]
     Active Substance: AZATHIOPRINE
     Indication: Interstitial lung disease
     Dosage: 150 MILLIGRAM, ONCE A DAY
     Route: 065
  3. RITUXIMAB [Suspect]
     Active Substance: RITUXIMAB
     Indication: Interstitial lung disease
     Dosage: 2000 MILLIGRAM  6 MONTHS (1000 MG X 2 DOSES EVERY 6 MONTHS)
     Route: 065
  4. NINTEDANIB [Concomitant]
     Active Substance: NINTEDANIB
     Indication: Interstitial lung disease
     Dosage: 100 MILLIGRAM, TWO TIMES A DAY
     Route: 065
  5. OXYGEN [Concomitant]
     Active Substance: OXYGEN
     Indication: Interstitial lung disease
     Dosage: 4 LITER (ON 4-5L OF OXYGEN)
     Route: 065

REACTIONS (3)
  - Breakthrough COVID-19 [Recovered/Resolved]
  - COVID-19 pneumonia [Recovered/Resolved]
  - Vaccination failure [Unknown]
